FAERS Safety Report 4531485-8 (Version None)
Quarter: 2004Q4

REPORT INFORMATION
  Report Type: 
  Country: None (occurrence: None)
  Receive Date: 20041216
  Receipt Date: 20041203
  Transmission Date: 20050328
  Serious: Yes (Hospitalization)
  Sender: FDA-Public Use
  Company Number: 2004-BP-13097BP

PATIENT
  Age: 74 Year
  Sex: Male
  Weight: 89.5 kg

DRUGS (6)
  1. MICARDIS [Suspect]
     Indication: PROPHYLAXIS
     Dosage: 80 MG (80 MG), NR
     Dates: start: 20040329
  2. MICARDIS [Suspect]
     Indication: RENAL DISORDER
     Dosage: 80 MG (80 MG), NR
     Dates: start: 20040329
  3. PLACEBO (BLIND) [Suspect]
     Indication: PROPHYLAXIS
     Dosage: 80 MG (80 MG) NR
     Dates: start: 20040329
  4. PLACEBO (BLIND) [Suspect]
     Indication: RENAL DISORDER
     Dosage: 80 MG (80 MG) NR
     Dates: start: 20040329
  5. CELLCEPT [Suspect]
     Indication: IMMUNOSUPPRESSION
     Dosage: 1500 MG (250 MG), NR
     Dates: start: 20040329
  6. PREDNISONE [Suspect]
     Indication: IMMUNOSUPPRESSION
     Dosage: 10 MG (10 MG) NR

REACTIONS (10)
  - ABSCESS [None]
  - BLOOD GLUCOSE INCREASED [None]
  - BUTTOCK PAIN [None]
  - CHILLS [None]
  - CONSTIPATION [None]
  - HAEMOGLOBIN DECREASED [None]
  - MARKEDLY REDUCED DIETARY INTAKE [None]
  - NAUSEA [None]
  - RENAL IMPAIRMENT [None]
  - URINARY TRACT INFECTION [None]
